FAERS Safety Report 4281787-8 (Version None)
Quarter: 2004Q1

REPORT INFORMATION
  Report Type: 
  Country: None (occurrence: None)
  Receive Date: 20040128
  Receipt Date: 20040116
  Transmission Date: 20041129
  Serious: Yes (Death, Hospitalization)
  Sender: FDA-Public Use
  Company Number: US064214

PATIENT
  Age: 65 Year
  Sex: Female

DRUGS (2)
  1. ENBREL [Suspect]
     Indication: RHEUMATOID ARTHRITIS
     Dosage: 2 IN 1 WEEKS, SC
     Route: 058
     Dates: start: 19980101, end: 20031018
  2. METHOTREXATE [Concomitant]

REACTIONS (22)
  - BACTERIA SPUTUM IDENTIFIED [None]
  - CARDIAC ARREST [None]
  - CEREBROVASCULAR ACCIDENT [None]
  - CONVULSION [None]
  - CYSTITIS KLEBSIELLA [None]
  - DECUBITUS ULCER [None]
  - DISSEMINATED INTRAVASCULAR COAGULATION [None]
  - ESCHERICHIA BACTERAEMIA [None]
  - FUNGAL INFECTION [None]
  - HAND FRACTURE [None]
  - HIP FRACTURE [None]
  - KIDNEY INFECTION [None]
  - LOSS OF CONSCIOUSNESS [None]
  - NECK PAIN [None]
  - NEPHRECTOMY [None]
  - PNEUMONIA ASPIRATION [None]
  - RENAL FAILURE ACUTE [None]
  - RESPIRATORY ARREST [None]
  - STAPHYLOCOCCAL INFECTION [None]
  - UPPER LIMB FRACTURE [None]
  - UROSEPSIS [None]
  - VOMITING [None]
